FAERS Safety Report 15978267 (Version 2)
Quarter: 2019Q1

REPORT INFORMATION
  Report Type: Report from Study
  Country: JP (occurrence: JP)
  Receive Date: 20190219
  Receipt Date: 20190304
  Transmission Date: 20190418
  Serious: Yes (Death, Hospitalization, Other)
  Sender: FDA-Public Use
  Company Number: JP-ALEXION PHARMACEUTICALS INC.-A201811123

PATIENT

DRUGS (2)
  1. SOLIRIS [Suspect]
     Active Substance: ECULIZUMAB
     Indication: PAROXYSMAL NOCTURNAL HAEMOGLOBINURIA
     Dosage: 600 MG, QW
     Route: 042
     Dates: start: 20150625, end: 20150716
  2. SOLIRIS [Suspect]
     Active Substance: ECULIZUMAB
     Dosage: 900 MG, Q2W
     Route: 042
     Dates: start: 20150723, end: 20190131

REACTIONS (7)
  - Disseminated intravascular coagulation [Fatal]
  - Altered state of consciousness [Unknown]
  - Blood creatine phosphokinase increased [Unknown]
  - Cholelithiasis [Fatal]
  - Infection [Unknown]
  - Liver disorder [Fatal]
  - Aspergillus test positive [Not Recovered/Not Resolved]

NARRATIVE: CASE EVENT DATE: 20180817
